FAERS Safety Report 18290490 (Version 3)
Quarter: 2020Q4

REPORT INFORMATION
  Report Type: Spontaneous
  Country: FR (occurrence: FR)
  Receive Date: 20200921
  Receipt Date: 20201006
  Transmission Date: 20210113
  Serious: Yes (Other)
  Sender: FDA-Public Use
  Company Number: FR-JNJFOC-20200918667

PATIENT
  Age: 85 Year
  Sex: Female
  Weight: 63 kg

DRUGS (1)
  1. DUROGESIC [Suspect]
     Active Substance: FENTANYL
     Indication: PRODUCT USED FOR UNKNOWN INDICATION
     Route: 062

REACTIONS (7)
  - Somnolence [Recovered/Resolved]
  - Physical product label issue [Unknown]
  - Prurigo [Unknown]
  - Wrong technique in product usage process [Unknown]
  - Accidental overdose [Unknown]
  - Off label use [Unknown]
  - Dry skin [Unknown]

NARRATIVE: CASE EVENT DATE: 20200618
